FAERS Safety Report 7145781-1 (Version None)
Quarter: 2010Q4

REPORT INFORMATION
  Report Type: 
  Country: None (occurrence: None)
  Receive Date: 20101208
  Receipt Date: 20101129
  Transmission Date: 20110411
  Serious: Yes (Death, Life-Threatening, Hospitalization, Disabling, Congenital Anomaly, Other)
  Sender: FDA-Public Use
  Company Number: A0871147B

PATIENT
  Sex: Female
  Weight: 2.5 kg

DRUGS (4)
  1. PAXIL [Suspect]
     Dosage: 40MG PER DAY
     Dates: start: 19940101, end: 19981201
  2. THIORIDAZINE HCL [Concomitant]
  3. VITAMIN AND MINERAL PRENATAL SUPPLEMENT W/ FOLIC ACID CAP [Concomitant]
  4. ZYRTEC [Concomitant]

REACTIONS (8)
  - DEATH [None]
  - DRUG EXPOSURE DURING PREGNANCY [None]
  - GASTROINTESTINAL NECROSIS [None]
  - GASTROSCHISIS [None]
  - INTESTINAL RESECTION [None]
  - LIVER AND SMALL INTESTINE TRANSPLANT [None]
  - MULTIPLE ORGAN TRANSPLANT REJECTION [None]
  - PREMATURE BABY [None]
